FAERS Safety Report 6430902-6 (Version None)
Quarter: 2009Q4

REPORT INFORMATION
  Report Type: 
  Country: None (occurrence: None)
  Receive Date: 20091106
  Receipt Date: 20091030
  Transmission Date: 20100525
  Serious: Yes (Hospitalization, Other)
  Sender: FDA-Public Use
  Company Number: JP-BRISTOL-MYERS SQUIBB COMPANY-14797658

PATIENT
  Age: 76 Year
  Sex: Female
  Weight: 30 kg

DRUGS (5)
  1. ERBITUX [Suspect]
     Indication: COLON CANCER
     Dosage: 2ND INF AND LAST INFUSION OF CETUXIMAB 250MG/M2 ON 20AUG09;
     Route: 042
     Dates: start: 20090813, end: 20090813
  2. IRINOTECAN HCL [Concomitant]
     Indication: COLON CANCER
     Route: 042
     Dates: start: 20090813, end: 20090813
  3. VENA [Concomitant]
     Indication: PREMEDICATION
     Dosage: TABS
     Route: 048
     Dates: start: 20090813, end: 20090820
  4. DEXART [Concomitant]
     Indication: PREMEDICATION
     Route: 042
     Dates: start: 20090813, end: 20090820
  5. KYTRIL [Concomitant]
     Indication: ANTIEMETIC SUPPORTIVE CARE
     Dates: start: 20090813

REACTIONS (1)
  - SMALL INTESTINAL PERFORATION [None]
